FAERS Safety Report 10022556 (Version 1)
Quarter: 2014Q1

REPORT INFORMATION
  Report Type: Spontaneous
  Country: US (occurrence: US)
  Receive Date: 20140319
  Receipt Date: 20140319
  Transmission Date: 20141002
  Serious: No
  Sender: FDA-Public Use
  Company Number: US-ASTRAZENECA-2014SE04527

PATIENT
  Age: 61 Year
  Sex: Female

DRUGS (32)
  1. METOPROLOL SUCCINATE [Suspect]
     Indication: CARDIAC VALVE DISEASE
     Route: 048
  2. PRILOSEC [Suspect]
     Route: 048
  3. LISINOPRIL [Concomitant]
     Indication: HYPERTENSION
  4. LYRICA [Concomitant]
     Indication: NEUROPATHY PERIPHERAL
  5. LYRICA [Concomitant]
     Indication: FIBROMYALGIA
  6. ANTIVERT [Concomitant]
     Indication: DIZZINESS
  7. ANTIVERT [Concomitant]
     Indication: MUSCULOSKELETAL DISCOMFORT
  8. NEURONTIN [Concomitant]
  9. METFORMIN [Concomitant]
     Indication: DIABETES MELLITUS
  10. FENOFIBRATE [Concomitant]
     Indication: BLOOD CHOLESTEROL ABNORMAL
  11. ZOFRAN [Concomitant]
     Indication: INFLAMMATORY BOWEL DISEASE
  12. ZOFRAN [Concomitant]
     Indication: NAUSEA
  13. ZOFRAN [Concomitant]
     Indication: VOMITING
  14. ZOFRAN [Concomitant]
     Indication: PAIN
  15. BENTYL [Concomitant]
     Indication: INFLAMMATORY BOWEL DISEASE
  16. BENTYL [Concomitant]
     Indication: NAUSEA
  17. BENTYL [Concomitant]
     Indication: VOMITING
  18. BENTYL [Concomitant]
     Indication: PAIN
  19. LOMOTIL [Concomitant]
     Indication: INFLAMMATORY BOWEL DISEASE
  20. LOMOTIL [Concomitant]
     Indication: DIARRHOEA
  21. TYLENOL/CODEINE NO.3 [Concomitant]
     Indication: MUSCULOSKELETAL DISCOMFORT
  22. TYLENOL/CODEINE NO.3 [Concomitant]
     Indication: BACK DISORDER
  23. TYLENOL/CODEINE NO.3 [Concomitant]
     Indication: FIBROMYALGIA
  24. TYLENOL/CODEINE NO.3 [Concomitant]
     Indication: SCIATICA
  25. BENEFIBER [Concomitant]
     Indication: INFLAMMATORY BOWEL DISEASE
  26. BENEFIBER [Concomitant]
     Indication: DIARRHOEA
  27. FISH OIL [Concomitant]
     Indication: BLOOD CHOLESTEROL ABNORMAL
  28. MULTIVITAMIN [Concomitant]
     Indication: SUPPLEMENTATION THERAPY
  29. PEPPERMINT [Concomitant]
     Indication: INFLAMMATORY BOWEL DISEASE
  30. PEPPERMINT [Concomitant]
     Indication: DIARRHOEA
  31. PEPPERMINT [Concomitant]
     Indication: NAUSEA
  32. PEPPERMINT [Concomitant]
     Indication: VOMITING

REACTIONS (2)
  - Drug intolerance [Unknown]
  - Off label use [Unknown]
